FAERS Safety Report 17836035 (Version 1)
Quarter: 2020Q2

REPORT INFORMATION
  Report Type: Spontaneous
  Country: NL (occurrence: NL)
  Receive Date: 20200528
  Receipt Date: 20200528
  Transmission Date: 20200714
  Serious: Yes (Death)
  Sender: FDA-Public Use
  Company Number: NL-CELGENEUS-NLD-20200508093

PATIENT
  Sex: Male

DRUGS (17)
  1. CYCLOPHOSPHAMIDE. [Concomitant]
     Active Substance: CYCLOPHOSPHAMIDE
     Indication: CHEMOTHERAPY
     Dosage: AS A PART OF CVP REGIMEN
     Route: 065
  2. CYTARABINE. [Concomitant]
     Active Substance: CYTARABINE
     Indication: BONE MARROW CONDITIONING REGIMEN
     Dosage: PART OF BEAM REGIMEN
     Route: 065
  3. LENALIDOMIDE [Suspect]
     Active Substance: LENALIDOMIDE
     Indication: PLASMA CELL MYELOMA
     Route: 048
  4. VINCRISTINE [Concomitant]
     Active Substance: VINCRISTINE
     Dosage: CAD REGIMEN
     Route: 065
  5. VINCRISTINE [Concomitant]
     Active Substance: VINCRISTINE
     Indication: PLASMA CELL MYELOMA
     Dosage: VAD REGIMEN
     Route: 065
  6. DOXORUBICIN [Concomitant]
     Active Substance: DOXORUBICIN
     Indication: PRODUCT USED FOR UNKNOWN INDICATION
     Dosage: VAD REGIMEN
     Route: 065
  7. LENALIDOMIDE [Suspect]
     Active Substance: LENALIDOMIDE
     Indication: DISEASE RECURRENCE
  8. DEXAMETHASONE. [Concomitant]
     Active Substance: DEXAMETHASONE
     Indication: DISEASE RECURRENCE
     Dosage: VAD REGIMEN
     Route: 065
  9. DOXORUBICIN [Concomitant]
     Active Substance: DOXORUBICIN
     Dosage: CAD REGIMEN
     Route: 065
  10. MELPHALAN. [Concomitant]
     Active Substance: MELPHALAN
     Indication: BONE MARROW CONDITIONING REGIMEN
     Dosage: AS A PART OF BEAM REGIMEN
     Route: 065
  11. ETOPOSIDE. [Concomitant]
     Active Substance: ETOPOSIDE
     Indication: CHEMOTHERAPY
     Dosage: PART OF CVP REGIMEN
     Route: 065
  12. ETOPOSIDE. [Concomitant]
     Active Substance: ETOPOSIDE
     Indication: BONE MARROW CONDITIONING REGIMEN
     Dosage: PART OF BEAM REGIMEN
     Route: 065
  13. CARMUSTINE. [Concomitant]
     Active Substance: CARMUSTINE
     Indication: BONE MARROW CONDITIONING REGIMEN
     Dosage: PART OF BEAM REGIMEN
     Route: 065
  14. BORTEZOMIB. [Concomitant]
     Active Substance: BORTEZOMIB
     Indication: CHEMOTHERAPY
     Dosage: PART OF CVP REGIMEN
     Route: 065
  15. ENDOXAN [Suspect]
     Active Substance: CYCLOPHOSPHAMIDE
     Indication: PLASMA CELL MYELOMA
     Dosage: CAD REGIMEN
     Route: 065
  16. MELPHALAN. [Concomitant]
     Active Substance: MELPHALAN
     Indication: STEM CELL TRANSPLANT
     Dosage: HIGH DOSE
     Route: 065
  17. DEXAMETHASONE. [Concomitant]
     Active Substance: DEXAMETHASONE
     Indication: PLASMA CELL MYELOMA
     Dosage: CAD REGIMEN
     Route: 065

REACTIONS (1)
  - Myelodysplastic syndrome [Fatal]
